FAERS Safety Report 7110530-X (Version None)
Quarter: 2010Q4

REPORT INFORMATION
  Report Type: 
  Country: None (occurrence: None)
  Receive Date: 20101118
  Receipt Date: 20101103
  Transmission Date: 20110411
  Serious: Yes (Hospitalization, Other)
  Sender: FDA-Public Use
  Company Number: US-ROCHE-632807

PATIENT
  Sex: Male
  Weight: 77.1 kg

DRUGS (4)
  1. ACCUTANE [Suspect]
     Route: 048
     Dates: start: 20030121, end: 20030209
  2. ACCUTANE [Suspect]
     Route: 048
     Dates: end: 20030301
  3. CLINDAMYCIN [Concomitant]
     Dosage: EVERY MORNING
  4. BREVOXYL [Concomitant]

REACTIONS (7)
  - COLITIS ULCERATIVE [None]
  - CROHN'S DISEASE [None]
  - DEPRESSION [None]
  - HEADACHE [None]
  - INFLAMMATORY BOWEL DISEASE [None]
  - IRRITABLE BOWEL SYNDROME [None]
  - SUICIDAL IDEATION [None]
